FAERS Safety Report 5793017-6 (Version None)
Quarter: 2008Q2

REPORT INFORMATION
  Report Type: 
  Country: None (occurrence: None)
  Receive Date: 20080627
  Receipt Date: 20080620
  Transmission Date: 20081010
  Serious: Yes (Hospitalization)
  Sender: FDA-Public Use
  Company Number: FR-BRISTOL-MYERS SQUIBB COMPANY-14241087

PATIENT
  Age: 67 Year
  Sex: Female

DRUGS (1)
  1. APROVEL TABS 150 MG [Suspect]
     Route: 048

REACTIONS (6)
  - BLOOD CREATINE PHOSPHOKINASE INCREASED [None]
  - BLOOD LACTATE DEHYDROGENASE INCREASED [None]
  - DEHYDRATION [None]
  - EATING DISORDER [None]
  - MOBILITY DECREASED [None]
  - TRANSAMINASES INCREASED [None]
